FAERS Safety Report 8352882-9 (Version None)
Quarter: 2012Q2

REPORT INFORMATION
  Report Type: 
  Country: None (occurrence: None)
  Receive Date: 20120511
  Receipt Date: 20120427
  Transmission Date: 20120825
  Serious: Yes (Hospitalization)
  Sender: FDA-Public Use
  Company Number: US-MYLANLABS-2012S1008956

PATIENT
  Age: 44 Year
  Sex: Female

DRUGS (13)
  1. CYMBALTA [Interacting]
     Indication: DEPRESSION
     Route: 065
  2. INSULIN LISPRO [Concomitant]
     Dosage: 30 MINS BEFORE MEALS
     Route: 065
  3. LIDOCAINE [Concomitant]
     Route: 061
  4. WARFARIN SODIUM [Suspect]
     Indication: ANTIPHOSPHOLIPID SYNDROME
     Dosage: 1-6 MG DAILY
     Route: 065
  5. ACETAMINOPHEN [Interacting]
     Indication: NEURALGIA
     Dosage: UP TO FOUR TIMES DAILY WHEN REQUIRED
     Route: 048
  6. GABAPENTIN [Concomitant]
     Route: 048
  7. SIMVASTATIN [Interacting]
     Route: 048
  8. METOPROLOL TARTRATE [Concomitant]
     Route: 048
  9. LANTUS [Concomitant]
     Dosage: AT BEDTIME
     Route: 065
  10. CYMBALTA [Interacting]
     Indication: NEURALGIA
     Route: 065
  11. AMLODIPINE BESYLATE [Concomitant]
     Route: 048
  12. OXYCODONE HCL [Concomitant]
     Route: 048
  13. VITAMIN TAB [Concomitant]
     Route: 048

REACTIONS (3)
  - INTERNATIONAL NORMALISED RATIO INCREASED [None]
  - DRUG INTERACTION [None]
  - TRANSAMINASES INCREASED [None]
